FAERS Safety Report 5326508-2 (Version None)
Quarter: 2007Q2

REPORT INFORMATION
  Report Type: 
  Country: None (occurrence: None)
  Receive Date: 20070516
  Receipt Date: 20070507
  Transmission Date: 20071010
  Serious: Yes (Hospitalization)
  Sender: FDA-Public Use
  Company Number: IT-ABBOTT-05P-083-0306935-00

PATIENT
  Sex: Female
  Weight: 82 kg

DRUGS (7)
  1. HUMIRA [Suspect]
     Indication: RHEUMATOID ARTHRITIS
     Route: 058
     Dates: start: 20041118, end: 20050501
  2. METHOTREXATE [Concomitant]
     Indication: RHEUMATOID ARTHRITIS
  3. PREDNISONE TAB [Concomitant]
     Indication: RHEUMATOID ARTHRITIS
     Dates: start: 20030601
  4. HYDROXYCHLOROQUINE PHOSPHATE [Concomitant]
     Indication: RHEUMATOID ARTHRITIS
     Dates: start: 20040601
  5. FERROUS SULFATE TAB [Concomitant]
     Indication: ANAEMIA
     Dates: start: 20040601
  6. LEKOVIT CA [Concomitant]
     Indication: OSTEOPOROSIS
     Dates: start: 20040601
  7. ^PANTOLAN^ [Concomitant]
     Indication: PROPHYLAXIS AGAINST GASTROINTESTINAL ULCER
     Dates: start: 20040601

REACTIONS (1)
  - UTERINE LEIOMYOMA [None]
